FAERS Safety Report 7640008-6 (Version None)
Quarter: 2011Q3

REPORT INFORMATION
  Report Type: 
  Country: None (occurrence: None)
  Receive Date: 20110727
  Receipt Date: 20110720
  Transmission Date: 20111222
  Serious: Yes (Hospitalization, Other)
  Sender: FDA-Public Use
  Company Number: US-ABBOTT-11P-163-0837379-00

PATIENT
  Sex: Female

DRUGS (3)
  1. HUMIRA [Suspect]
     Indication: RHEUMATOID ARTHRITIS
     Dates: start: 20030101, end: 20110101
  2. HUMIRA [Suspect]
     Dosage: SWITCHED TO PEN
  3. AMLODIPINE [Concomitant]
     Indication: HYPERTENSION

REACTIONS (14)
  - BLADDER PROLAPSE [None]
  - VAGINAL HAEMORRHAGE [None]
  - ALOPECIA [None]
  - POST PROCEDURAL COMPLICATION [None]
  - PETECHIAE [None]
  - WEIGHT DECREASED [None]
  - URINARY INCONTINENCE [None]
  - WHITE BLOOD CELL COUNT INCREASED [None]
  - NIGHT SWEATS [None]
  - INTESTINAL PROLAPSE [None]
  - DYSURIA [None]
  - RESPIRATORY DISORDER [None]
  - INCISION SITE ABSCESS [None]
  - THYROID NEOPLASM [None]
